FAERS Safety Report 5451709-2 (Version None)
Quarter: 2007Q3

REPORT INFORMATION
  Report Type: 
  Country: None (occurrence: None)
  Receive Date: 20070913
  Receipt Date: 20070907
  Transmission Date: 20080115
  Serious: Yes (Other)
  Sender: FDA-Public Use
  Company Number: JP-PFIZER INC-2007067744

PATIENT
  Age: 55 Year
  Sex: Male

DRUGS (1)
  1. SOLU-MEDROL [Suspect]
     Indication: SPINAL CORD INJURY
     Route: 042
     Dates: start: 20070811, end: 20070813

REACTIONS (2)
  - GASTROINTESTINAL HAEMORRHAGE [None]
  - HAEMATEMESIS [None]
